FAERS Safety Report 19204957 (Version 4)
Quarter: 2022Q3

REPORT INFORMATION
  Report Type: Report from Study
  Country: CA (occurrence: CA)
  Receive Date: 20210503
  Receipt Date: 20220712
  Transmission Date: 20221027
  Serious: Yes (Other)
  Sender: FDA-Public Use
  Company Number: CA-GLAXOSMITHKLINE-CA2021AMR093255

PATIENT

DRUGS (9)
  1. MEPOLIZUMAB [Suspect]
     Active Substance: MEPOLIZUMAB
     Indication: Asthma
     Dosage: 100 MG, Z EVERY 4 WEEKS
     Route: 058
     Dates: start: 20170906, end: 20210316
  2. VENTOLIN [Suspect]
     Active Substance: ALBUTEROL SULFATE
     Indication: Product used for unknown indication
     Dosage: UNK
  3. AZITHROMYCIN [Suspect]
     Active Substance: AZITHROMYCIN
     Indication: Product used for unknown indication
     Dosage: UNK
  4. FORMOTEROL [Suspect]
     Active Substance: FORMOTEROL
     Indication: Product used for unknown indication
     Dosage: UNK
  5. GLYCOPYRROLATE [Suspect]
     Active Substance: GLYCOPYRROLATE
     Indication: Product used for unknown indication
     Dosage: UNK
  6. PREDNISONE [Suspect]
     Active Substance: PREDNISONE
     Indication: Product used for unknown indication
     Dosage: UNK
  7. ZENHALE [Concomitant]
     Active Substance: FORMOTEROL FUMARATE\MOMETASONE FUROATE
     Indication: Product used for unknown indication
     Dosage: UNK
  8. GLYCOPYRROLATE [Concomitant]
     Active Substance: GLYCOPYRROLATE
     Indication: Product used for unknown indication
     Dosage: UNK
  9. PANTOPRAZOLE MAGNESIUM [Concomitant]
     Active Substance: PANTOPRAZOLE MAGNESIUM
     Indication: Product used for unknown indication

REACTIONS (6)
  - Cellulitis orbital [Unknown]
  - Infection [Unknown]
  - Wheezing [Unknown]
  - Inflammation [Unknown]
  - Cough [Unknown]
  - Asthma [Unknown]

NARRATIVE: CASE EVENT DATE: 20210301
